FAERS Safety Report 24641700 (Version 1)
Quarter: 2024Q4

REPORT INFORMATION
  Report Type: Spontaneous
  Country: GB (occurrence: GB)
  Receive Date: 20241120
  Receipt Date: 20241120
  Transmission Date: 20250115
  Serious: Yes (Hospitalization, Other)
  Sender: ASCEND THERAPEUTICS US, LLC
  Company Number: GB-Ascend Therapeutics US, LLC-2165463

PATIENT
  Age: 3 Year
  Sex: Male

DRUGS (2)
  1. ANDROGEL [Suspect]
     Active Substance: TESTOSTERONE
     Indication: Product used for unknown indication
  2. TESTOSTERONE [Suspect]
     Active Substance: TESTOSTERONE

REACTIONS (4)
  - Precocious puberty [Not Recovered/Not Resolved]
  - Medication error [Unknown]
  - Poor quality sleep [Not Recovered/Not Resolved]
  - Blood testosterone increased [Not Recovered/Not Resolved]
